FAERS Safety Report 4681540-7 (Version None)
Quarter: 2005Q2

REPORT INFORMATION
  Report Type: 
  Country: None (occurrence: None)
  Receive Date: 20050603
  Receipt Date: 20020110
  Transmission Date: 20051028
  Serious: Yes (Life-Threatening, Hospitalization, Disabling, Other)
  Sender: FDA-Public Use
  Company Number: US-GLAXOSMITHKLINE-A0357332B

PATIENT
  Age: 43 Year
  Sex: Male
  Weight: 68.2 kg

DRUGS (9)
  1. BC HEADACHE POWDER [Suspect]
     Indication: ILL-DEFINED DISORDER
     Route: 048
  2. CONTAC 12 HOUR [Concomitant]
     Indication: NASOPHARYNGITIS
     Route: 048
  3. NIFEREX-150 [Concomitant]
     Route: 048
     Dates: start: 20000211
  4. DEPAKOTE [Concomitant]
     Dosage: 250MG TWICE PER DAY
     Route: 048
  5. MULTI-VITAMIN [Concomitant]
     Route: 048
  6. ATIVAN [Concomitant]
     Indication: AGITATION
     Route: 048
  7. NEURONTIN [Concomitant]
     Dosage: 300MG AT NIGHT
     Route: 048
     Dates: start: 20000501
  8. CELEXA [Concomitant]
     Indication: DEPRESSION
     Dosage: 10MG PER DAY
     Route: 048
     Dates: start: 20000508
  9. CELEXA [Concomitant]
     Dosage: 20MG PER DAY
     Route: 048

REACTIONS (33)
  - ANAEMIA [None]
  - ANHEDONIA [None]
  - ANXIETY [None]
  - APHASIA [None]
  - BLEEDING TIME PROLONGED [None]
  - BLOOD ALBUMIN INCREASED [None]
  - BRAIN HERNIATION [None]
  - CEREBROVASCULAR ACCIDENT [None]
  - COGNITIVE DISORDER [None]
  - COMA [None]
  - CONFUSIONAL STATE [None]
  - DYSGRAPHIA [None]
  - EMOTIONAL DISTRESS [None]
  - ENCEPHALOPATHY [None]
  - GRANULOMA [None]
  - HAEMORRHAGIC STROKE [None]
  - HEMIPARESIS [None]
  - HEPATITIS C [None]
  - HYPERTENSION [None]
  - IMPAIRED SELF-CARE [None]
  - INJURY [None]
  - INTERNATIONAL NORMALISED RATIO INCREASED [None]
  - INTRACRANIAL PRESSURE INCREASED [None]
  - MEMORY IMPAIRMENT [None]
  - MYOCARDIAL INFARCTION [None]
  - PAIN [None]
  - PROTHROMBIN TIME PROLONGED [None]
  - PYREXIA [None]
  - READING DISORDER [None]
  - SPLENOMEGALY [None]
  - SUBDURAL HAEMATOMA [None]
  - SUPRAVENTRICULAR TACHYCARDIA [None]
  - VENTRICULAR DRAINAGE [None]
